FAERS Safety Report 5133145-1 (Version None)
Quarter: 2006Q4

REPORT INFORMATION
  Report Type: 
  Country: None (occurrence: None)
  Receive Date: 20061018
  Receipt Date: 20060928
  Transmission Date: 20070319
  Serious: Yes (Other)
  Sender: FDA-Public Use
  Company Number: GB200610000050

PATIENT
  Age: 26 Year
  Sex: Female

DRUGS (2)
  1. DULOXETINE [Suspect]
     Indication: DEPRESSION
     Dosage: 90 + 30 MG, UNK, ORAL - SEE IMAGE
     Route: 048
     Dates: start: 20060701, end: 20060716
  2. PROPRANOLOL [Concomitant]

REACTIONS (2)
  - DRUG WITHDRAWAL SYNDROME [None]
  - OBSESSIVE THOUGHTS [None]
